FAERS Safety Report 5632643-1 (Version None)
Quarter: 2008Q1

REPORT INFORMATION
  Report Type: 
  Country: None (occurrence: None)
  Receive Date: 20080219
  Receipt Date: 20080204
  Transmission Date: 20080703
  Serious: Yes (Hospitalization)
  Sender: FDA-Public Use
  Company Number: 2008000250

PATIENT
  Sex: Male
  Weight: 82.2 kg

DRUGS (2)
  1. ERLOTINIB (ERLOTINIB HCL) (TABLET) (ERLOTINIB HCL) [Suspect]
     Indication: GLIOBLASTOMA MULTIFORME
     Dosage: (150 MG,QD),ORAL
     Route: 048
     Dates: start: 20071204
  2. CCI-779 (INJECTION FOR INFUSION) [Suspect]
     Dosage: (15 MG,WEEKLY), INTRAVENOUS
     Route: 042
     Dates: start: 20071204

REACTIONS (9)
  - ATAXIA [None]
  - CEREBRAL HAEMORRHAGE [None]
  - CONVULSION [None]
  - DIZZINESS [None]
  - ENCEPHALOPATHY [None]
  - HEMIANOPIA HOMONYMOUS [None]
  - RETINAL HAEMORRHAGE [None]
  - RETINOPATHY [None]
  - TOTAL LUNG CAPACITY DECREASED [None]
